FAERS Safety Report 16024276 (Version 2)
Quarter: 2019Q1

REPORT INFORMATION
  Report Type: Report from Study
  Country: ZA (occurrence: ZA)
  Receive Date: 20190301
  Receipt Date: 20190325
  Transmission Date: 20190418
  Serious: Yes (Hospitalization)
  Sender: FDA-Public Use
  Company Number: ZA-SA-2019SA053384

PATIENT
  Age: 67 Year
  Sex: Male

DRUGS (2)
  1. OPTISULIN [INSULIN GLARGINE] [Suspect]
     Active Substance: INSULIN GLARGINE
     Dosage: 15 U, HS, BT-22 UNITS
     Route: 065
     Dates: start: 20190211
  2. INSULIN GLULISINE [Suspect]
     Active Substance: INSULIN GLULISINE
     Dosage: BB-12 UNITS, BL-12 UNITS, BS-12 UNITS
     Route: 065
     Dates: start: 20190211

REACTIONS (2)
  - Weight decreased [Not Recovered/Not Resolved]
  - Myocardial infarction [Not Recovered/Not Resolved]

NARRATIVE: CASE EVENT DATE: 20190215
